FAERS Safety Report 23443027 (Version 5)
Quarter: 2024Q2

REPORT INFORMATION
  Report Type: Spontaneous
  Country: US (occurrence: US)
  Receive Date: 20240125
  Receipt Date: 20240506
  Transmission Date: 20240716
  Serious: Yes (Hospitalization, Other)
  Sender: FDA-Public Use
  Company Number: US-PFIZER INC-202400022927

PATIENT
  Age: 73 Year
  Sex: Female
  Weight: 76.5 kg

DRUGS (24)
  1. IBRANCE [Suspect]
     Active Substance: PALBOCICLIB
     Indication: Hormone receptor positive HER2 negative breast cancer
     Dosage: 100 MG, CYCLIC, TAKE 1 TABLET BY MOUTH ONCE DAILY X 21 DAYS, EVERY 28 DAYS
     Route: 048
     Dates: start: 20221104, end: 20221115
  2. IBRANCE [Suspect]
     Active Substance: PALBOCICLIB
     Indication: Metastases to bone
     Dosage: 100 MG, 1X/DAY
     Dates: start: 202310
  3. IBRANCE [Suspect]
     Active Substance: PALBOCICLIB
     Indication: Breast cancer female
     Dosage: 100 MG, CYCLIC, 1 TABLET DAILY FOR 21DAYS FOLLOWED BY 7 DAYS OFF, Q28D, SWALLOW WHOLE
     Route: 048
     Dates: start: 20240117
  4. LETROZOLE [Suspect]
     Active Substance: LETROZOLE
     Indication: Hormone receptor positive HER2 negative breast cancer
     Dosage: UNK
     Dates: start: 20221104
  5. LETROZOLE [Suspect]
     Active Substance: LETROZOLE
     Dosage: 2.5 MG, DAILY
     Dates: start: 202310
  6. ASPIRIN [Concomitant]
     Active Substance: ASPIRIN
     Dosage: UNK
     Dates: start: 202402
  7. ATORVASTATIN CALCIUM ANHYDROUS [Concomitant]
     Active Substance: ATORVASTATIN CALCIUM ANHYDROUS
     Dosage: UNK
     Dates: start: 202310
  8. BLACK COHOSH [Concomitant]
     Active Substance: BLACK COHOSH
     Dosage: UNK
     Dates: end: 202404
  9. CALCIUM CITRATE [Concomitant]
     Active Substance: CALCIUM CITRATE
     Dosage: 1200 MG, 1X/DAY
  10. CULTURELLE [Concomitant]
     Active Substance: LACTOBACILLUS RHAMNOSUS
     Dosage: UNK UNK, 1X/DAY
  11. FEMARA [Concomitant]
     Active Substance: LETROZOLE
     Dosage: UNK UNK, 1X/DAY
  12. FISH OIL [Concomitant]
     Active Substance: FISH OIL
     Dosage: 180 MG, 2X/DAY
  13. HYDROXYZINE HYDROCHLORIDE [Concomitant]
     Active Substance: HYDROXYZINE HYDROCHLORIDE
     Dosage: UNK
     Dates: start: 2023
  14. LATANOPROST [Concomitant]
     Active Substance: LATANOPROST
     Dosage: EYE GTTS 1 EACH EYE DAILY/NIGHT
  15. MAGNESIUM [Concomitant]
     Active Substance: MAGNESIUM
     Dosage: 150 MG, 2X/DAY
  16. METOPROLOL SUCCINATE [Concomitant]
     Active Substance: METOPROLOL SUCCINATE
     Dosage: 25 MG, 1X/DAY
  17. VITAMINS NOS [Concomitant]
     Active Substance: VITAMINS
     Dosage: UNK, 1X/DAY
  18. MILK OF MAGNESIA [Concomitant]
     Active Substance: MAGNESIUM HYDROXIDE
     Dosage: NIGHT
  19. NITROGLYCERIN [Concomitant]
     Active Substance: NITROGLYCERIN
     Dosage: UNK
  20. OXYCODONE AND ACETAMINOPHEN [Concomitant]
     Active Substance: ACETAMINOPHEN\OXYCODONE HYDROCHLORIDE
     Dosage: 1 A 65-325MG
  21. THE ORIGINAL NATURAL HERB COUGH DROPS [Concomitant]
     Active Substance: MENTHOL
     Dosage: NIGHT
  22. SENNA [Concomitant]
     Active Substance: SENNA LEAF\SENNOSIDES\SENNOSIDES A AND B
     Dosage: UNK, 1X/DAY
  23. SERTRALINE HYDROCHLORIDE [Concomitant]
     Active Substance: SERTRALINE HYDROCHLORIDE
     Dosage: 100 MG, 1X/DAY
  24. ZOLPIDEM TARTRATE [Concomitant]
     Active Substance: ZOLPIDEM TARTRATE
     Dosage: NIGHT

REACTIONS (25)
  - Pancytopenia [Not Recovered/Not Resolved]
  - Animal bite [Recovered/Resolved]
  - Night sweats [Not Recovered/Not Resolved]
  - Adjustment disorder with anxiety [Recovered/Resolved]
  - White blood cell count decreased [Not Recovered/Not Resolved]
  - Haemoglobin decreased [Not Recovered/Not Resolved]
  - Haematocrit decreased [Not Recovered/Not Resolved]
  - Blood creatinine increased [Not Recovered/Not Resolved]
  - Anaemia macrocytic [Not Recovered/Not Resolved]
  - Thrombosis [Unknown]
  - Dyspnoea [Unknown]
  - Arthropathy [Unknown]
  - Peripheral swelling [Unknown]
  - Gait disturbance [Unknown]
  - Affective disorder [Unknown]
  - Secretion discharge [Unknown]
  - Vein collapse [Unknown]
  - Dysphagia [Unknown]
  - Oxygen saturation abnormal [Unknown]
  - Hyperhidrosis [Unknown]
  - Tinnitus [Unknown]
  - Lacrimation increased [Unknown]
  - Palpitations [Unknown]
  - Hypoacusis [Unknown]
  - Vision blurred [Unknown]

NARRATIVE: CASE EVENT DATE: 20230101
